FAERS Safety Report 6109467-4 (Version None)
Quarter: 2009Q1

REPORT INFORMATION
  Report Type: 
  Country: None (occurrence: None)
  Receive Date: 20090306
  Receipt Date: 20090306
  Transmission Date: 20090719
  Serious: Yes (Hospitalization)
  Sender: FDA-Public Use
  Company Number: None

PATIENT
  Age: 67 Year
  Sex: Male
  Weight: 86.1834 kg

DRUGS (15)
  1. BEVACIZUMAB 10MG/KG [Suspect]
     Indication: PANCREATIC CARCINOMA METASTATIC
     Dosage: 10MG/KG IV, D1+15 28DAY
     Route: 042
     Dates: start: 20080912, end: 20090213
  2. GEMCITABINE [Suspect]
     Indication: PANCREATIC CARCINOMA METASTATIC
     Dosage: IV DAYS 1+15 CYCLE
     Route: 042
     Dates: start: 20080912, end: 20090213
  3. FLUOROURACIL [Suspect]
     Indication: PANCREATIC CARCINOMA METASTATIC
     Dosage: IV DAYS 1+15 CYCLE
     Route: 042
     Dates: start: 20080912, end: 20090213
  4. AMBIEN [Concomitant]
  5. ATENOL [Concomitant]
  6. ATIVAN [Concomitant]
  7. AVANDARYL [Concomitant]
  8. DARVOCET [Concomitant]
  9. LANTUS [Concomitant]
  10. LIPITOR [Concomitant]
  11. MARINOL [Concomitant]
  12. MEGACE [Concomitant]
  13. MIRALAX [Concomitant]
  14. OMEPRAZOLE [Concomitant]
  15. VICODIN [Concomitant]

REACTIONS (14)
  - ABDOMINAL DISTENSION [None]
  - DEEP VEIN THROMBOSIS [None]
  - GASTRIC DISORDER [None]
  - GASTROINTESTINAL DISORDER [None]
  - HEPATIC LESION [None]
  - HICCUPS [None]
  - INTESTINAL FISTULA [None]
  - NAUSEA [None]
  - NEOPLASM PROGRESSION [None]
  - NO THERAPEUTIC RESPONSE [None]
  - OBSTRUCTION GASTRIC [None]
  - PANCREATIC DISORDER [None]
  - PULMONARY EMBOLISM [None]
  - VOMITING [None]
